FAERS Safety Report 4639982-1 (Version None)
Quarter: 2005Q2

REPORT INFORMATION
  Report Type: 
  Country: None (occurrence: None)
  Receive Date: 20050415
  Receipt Date: 20050330
  Transmission Date: 20051028
  Serious: Yes (Other)
  Sender: FDA-Public Use
  Company Number: FR_050306135

PATIENT
  Age: 60 Year
  Sex: Male

DRUGS (1)
  1. PERGOLIDE MESYLATE [Suspect]
     Indication: PARKINSON'S DISEASE
     Dosage: 5 MG DAY
     Dates: start: 20040501

REACTIONS (1)
  - MITRAL VALVE DISEASE [None]
